FAERS Safety Report 4563793-9 (Version None)
Quarter: 2005Q1

REPORT INFORMATION
  Report Type: 
  Country: None (occurrence: None)
  Receive Date: 20050121
  Receipt Date: 20041115
  Transmission Date: 20050727
  Serious: Yes (Other)
  Sender: FDA-Public Use
  Company Number: 2004097155

PATIENT
  Age: 62 Year
  Sex: Female
  Weight: 99.7913 kg

DRUGS (6)
  1. CELEBREX [Suspect]
     Indication: ARTHRITIS
     Dosage: 400 MG (200 MG, 2 IN 1 D), ORAL
     Route: 048
  2. PRINZIDE                  (HYDROCHLOROTHIAZIED, LISINOPRIL) [Concomitant]
  3. LEVOTHYROXINE SODIUM [Concomitant]
  4. CONJUGATED ESTROGENS [Concomitant]
  5. LOPERAMIDE HCL [Concomitant]
  6. VITAMINS (VITAMINS) [Concomitant]

REACTIONS (4)
  - INSOMNIA [None]
  - KNEE ARTHROPLASTY [None]
  - PAIN [None]
  - POST PROCEDURAL COMPLICATION [None]
